FAERS Safety Report 9708331 (Version 3)
Quarter: 2014Q3

REPORT INFORMATION
  Report Type: Report from Study
  Country: US (occurrence: US)
  Receive Date: 20131125
  Receipt Date: 20140805
  Transmission Date: 20150326
  Serious: Yes (Other)
  Sender: FDA-Public Use
  Company Number: US-ACTELION-A-NJ2013-91507

PATIENT
  Age: 59 Year
  Sex: Male

DRUGS (3)
  1. TRACLEER [Suspect]
     Active Substance: BOSENTAN\BOSENTAN MONOHYDRATE
     Indication: HIV INFECTION
     Dosage: 125 MG, QD
     Route: 048
  2. TRACLEER [Suspect]
     Active Substance: BOSENTAN\BOSENTAN MONOHYDRATE
     Dosage: UNK
     Route: 048
  3. MOTRIN [Concomitant]
     Active Substance: IBUPROFEN

REACTIONS (7)
  - Nerve injury [Unknown]
  - Syncope [Unknown]
  - Throat cancer [Unknown]
  - Dizziness [Recovering/Resolving]
  - Weight decreased [Unknown]
  - Neoplasm malignant [Unknown]
  - Musculoskeletal pain [Unknown]
